FAERS Safety Report 21002163 (Version 1)
Quarter: 2022Q2

REPORT INFORMATION
  Report Type: Report from Study
  Country: IT (occurrence: IT)
  Receive Date: 20220624
  Receipt Date: 20220624
  Transmission Date: 20220721
  Serious: Yes (Hospitalization)
  Sender: FDA-Public Use
  Company Number: None

PATIENT
  Age: 16 Year
  Sex: Female

DRUGS (4)
  1. FLUOXETINE [Suspect]
     Active Substance: FLUOXETINE HYDROCHLORIDE
     Indication: Product used for unknown indication
     Dosage: UNIT DOSE : 140 MG , ADDITIONAL INFORMATION : ABUSE / MISUSE
     Route: 048
  2. OXCARBAZEPINE [Suspect]
     Active Substance: OXCARBAZEPINE
     Indication: Product used for unknown indication
     Dosage: FORM STRENGTH : 300 MG , UNIT DOSE : 3000 MG,ADDITIONAL INFORMATION : ABUSE / MISUSE
     Route: 048
  3. SULPIRIDE [Suspect]
     Active Substance: SULPIRIDE
     Indication: Product used for unknown indication
     Dosage: LEVOPRAID   , FORM STRENGTH 50 MG , UNIT DOSE : 500 MG,ADDITIONAL INFORMATION : ABUSE / MISUSE
     Route: 048
  4. IBUPROFEN [Suspect]
     Active Substance: IBUPROFEN
     Indication: Product used for unknown indication
     Dosage: UNIT DOSE : 2400 MG,ADDITIONAL INFORMATION : ABUSE / MISUSE
     Route: 048

REACTIONS (3)
  - Intentional self-injury [Recovering/Resolving]
  - Balance disorder [Recovering/Resolving]
  - Drug abuse [Recovering/Resolving]

NARRATIVE: CASE EVENT DATE: 20220402
